FAERS Safety Report 15320185 (Version 3)
Quarter: 2019Q3

REPORT INFORMATION
  Report Type: Spontaneous
  Country: US (occurrence: US)
  Receive Date: 20180827
  Receipt Date: 20190902
  Transmission Date: 20191004
  Serious: Yes (Hospitalization, Other)
  Sender: FDA-Public Use
  Company Number: US-PFIZER INC-2018343964

PATIENT
  Age: 70 Year
  Sex: Male

DRUGS (1)
  1. XELJANZ XR [Suspect]
     Active Substance: TOFACITINIB CITRATE
     Indication: RHEUMATOID ARTHRITIS
     Dosage: 11 MG, DAILY ORAL TABLET 1 EVERY DAY
     Route: 048

REACTIONS (2)
  - Drug interaction [Recovered/Resolved]
  - Urinary retention [Recovered/Resolved]
